FAERS Safety Report 8831127 (Version 2)
Quarter: 2013Q1

REPORT INFORMATION
  Report Type: Spontaneous
  Country: HU (occurrence: HU)
  Receive Date: 20121008
  Receipt Date: 20130219
  Transmission Date: 20140127
  Serious: Yes (Hospitalization)
  Sender: FDA-Public Use
  Company Number: HU-UCBSA-068087

PATIENT
  Age: 26 Year
  Sex: Female

DRUGS (4)
  1. CIMZIA [Suspect]
     Indication: RHEUMATOID ARTHRITIS
     Route: 058
     Dates: start: 20120210, end: 20120912
  2. YASMINELLE [Suspect]
     Indication: CONTRACEPTION
  3. METHOTREXATE [Concomitant]
     Indication: RHEUMATOID ARTHRITIS
  4. DELAGIL [Concomitant]
     Indication: RHEUMATOID ARTHRITIS

REACTIONS (1)
  - Intracranial venous sinus thrombosis [Recovered/Resolved]
